FAERS Safety Report 6917973-5 (Version None)
Quarter: 2010Q3

REPORT INFORMATION
  Report Type: 
  Country: None (occurrence: None)
  Receive Date: 20100810
  Receipt Date: 20090917
  Transmission Date: 20110219
  Serious: Yes (Other)
  Sender: FDA-Public Use
  Company Number: US-PFIZER INC-2009221036

PATIENT
  Sex: Female

DRUGS (1)
  1. TOVIAZ [Suspect]
     Dosage: UNIT DOSE: UNKNOWN;

REACTIONS (3)
  - ABASIA [None]
  - DIZZINESS [None]
  - OEDEMA PERIPHERAL [None]
